FAERS Safety Report 4282267-6 (Version None)
Quarter: 2004Q1

REPORT INFORMATION
  Report Type: 
  Country: None (occurrence: None)
  Receive Date: 20040112
  Receipt Date: 20030129
  Transmission Date: 20041129
  Serious: Yes (Other)
  Sender: FDA-Public Use
  Company Number: NSADSS2003005071

PATIENT
  Age: 69 Year
  Sex: Female

DRUGS (6)
  1. REOPRO [Suspect]
     Indication: ILL-DEFINED DISORDER
     Dosage: 1 IN 1 AS NECESSARY, INTRAVENOUS DRIP
     Route: 041
     Dates: start: 20030122
  2. LIDOCAINE [Concomitant]
  3. ASPIRIN [Concomitant]
  4. CLOPIDOGREL BISULFATE [Concomitant]
  5. MAGNESIUM (MAGNESIUM) [Concomitant]
  6. HEPARIN [Concomitant]

REACTIONS (1)
  - THROMBOCYTOPENIA [None]
